FAERS Safety Report 19889929 (Version 1)
Quarter: 2021Q3

REPORT INFORMATION
  Report Type: Spontaneous
  Country: US (occurrence: US)
  Receive Date: 20210928
  Receipt Date: 20210928
  Transmission Date: 20211014
  Serious: Yes (Hospitalization)
  Sender: FDA-Public Use
  Company Number: None

PATIENT
  Age: 32 Year
  Sex: Male
  Weight: 78.2 kg

DRUGS (8)
  1. CYCLOPHOSPHAMIDE. [Suspect]
     Active Substance: CYCLOPHOSPHAMIDE
     Dates: end: 20210907
  2. CYTARABINE. [Suspect]
     Active Substance: CYTARABINE
     Dates: end: 20210907
  3. DOXORUBICIN HYDROCHLORIDE. [Suspect]
     Active Substance: DOXORUBICIN HYDROCHLORIDE
     Dates: end: 20210907
  4. METHOTREXATE. [Suspect]
     Active Substance: METHOTREXATE
     Dates: end: 20210803
  5. PONATINIB HYDROCHLORIDE [Suspect]
     Active Substance: PONATINIB
     Dates: end: 20210913
  6. MESNA. [Suspect]
     Active Substance: MESNA
     Dates: end: 20210907
  7. DEXAMETHASONE. [Suspect]
     Active Substance: DEXAMETHASONE
     Dates: end: 20210907
  8. VINCRISTINE SULFATE. [Suspect]
     Active Substance: VINCRISTINE SULFATE
     Dates: end: 20210907

REACTIONS (7)
  - Abdominal pain [None]
  - Vomiting [None]
  - Nausea [None]
  - Gastrointestinal wall thickening [None]
  - Pneumonia [None]
  - Diarrhoea [None]
  - Enterocolitis [None]

NARRATIVE: CASE EVENT DATE: 20210913
